FAERS Safety Report 4983575-3 (Version None)
Quarter: 2006Q2

REPORT INFORMATION
  Report Type: 
  Country: None (occurrence: None)
  Receive Date: 20060425
  Receipt Date: 20060425
  Transmission Date: 20061013
  Serious: Yes (Other)
  Sender: FDA-Public Use
  Company Number: None

PATIENT
  Age: 62 Year
  Sex: Male
  Weight: 118.4 kg

DRUGS (13)
  1. ATROVENT [Suspect]
  2. LISINOPRIL [Concomitant]
  3. ATENOLOL [Concomitant]
  4. GLYBURIDE 2.5 MG/METFORMIN HCL [Concomitant]
  5. SIMVASTATIN [Concomitant]
  6. IPRATROPIUM BROMIDE INH [Concomitant]
  7. LORATADINE [Concomitant]
  8. OMEPRAZOLE [Concomitant]
  9. FORMOTEROL FUMARATE INH [Concomitant]
  10. TIOTROPIUM INH [Concomitant]
  11. FLUNISOLIDE INHL [Concomitant]
  12. PROPOXYPHENE [Concomitant]
  13. ALBUTEROL [Concomitant]

REACTIONS (1)
  - WHEEZING [None]
